FAERS Safety Report 10085845 (Version 2)
Quarter: 2014Q2

REPORT INFORMATION
  Report Type: Spontaneous
  Country: US (occurrence: US)
  Receive Date: 20140418
  Receipt Date: 20140514
  Transmission Date: 20141212
  Serious: No
  Sender: FDA-Public Use
  Company Number: US-PFIZER INC-2014106790

PATIENT
  Age: 72 Year
  Sex: Female

DRUGS (19)
  1. TORISEL [Suspect]
     Indication: METASTATIC RENAL CELL CARCINOMA
     Dosage: 25 MG, WEEKLY
     Route: 042
     Dates: start: 20090216, end: 20130924
  2. DIPHENHYDRAMINE HCL [Concomitant]
     Dosage: UNK
     Dates: start: 20090216
  3. SODIUM CHLORIDE [Concomitant]
     Dosage: UNK
     Dates: start: 20090216
  4. ATORVASTATIN CALCIUM [Concomitant]
     Dosage: 10 MG, 1X/DAY (AT BEDTIME)
     Route: 048
  5. GLIPIZIDE [Concomitant]
     Dosage: 10 MG, DAILY
     Route: 048
  6. INSULIN GLARGINE [Concomitant]
     Dosage: 8 DF, 1X/DAY (8 UNITS (OF 100 UNITS/ML)) AT BEDTIME
     Route: 058
  7. LIPITOR [Concomitant]
     Dosage: 1 DF, DAILY
     Route: 048
  8. MIRAPEX [Concomitant]
     Dosage: 0.5 MG, (6X/D)
     Route: 048
  9. PRAMIPEXOLE DIHYDROCHLORIDE [Concomitant]
     Dosage: 0.5 MG, (TAKE AS DIRECTED)
     Route: 048
  10. PROCHLORPERAZINE MALEATE [Concomitant]
     Dosage: 10 MG, 3X/DAY (PRN)
     Route: 048
     Dates: start: 20090216
  11. PROPRANOLOL HYDROCHLORIDE [Concomitant]
     Dosage: 40 MG, 2X/DAY
     Route: 048
     Dates: start: 20101213
  12. PROPRANOLOL HYDROCHLORIDE [Concomitant]
     Dosage: 120 MG, DAILY [120 MG (OF 20 MG)]
     Route: 048
     Dates: end: 20100309
  13. STALEVO 100 [Concomitant]
     Dosage: (25-100-200 MG, TAKE AS DIRECTED)
     Route: 048
  14. VALSARTAN-HYDROCHLOROTHIAZIDE [Concomitant]
     Dosage: UNK, DAILY
     Route: 048
  15. VITAMIN B-12 [Concomitant]
     Dosage: 1000 UG, DAILY
     Route: 048
  16. RED BLOOD CELLS, CONCENTRATED [Concomitant]
     Dosage: 2 DF, DAILY (2 UNITS INTRAVENOUS DAILY FOR 1 DAY)
     Route: 042
     Dates: start: 20140416, end: 20140416
  17. CRESTOR [Concomitant]
     Dosage: 10 MG, 1X/DAY [10 MG (OF 10 MG)]
     Route: 048
     Dates: end: 20100415
  18. DIOVANE [Concomitant]
     Dosage: 80 MG, DAILY
     Route: 048
     Dates: start: 20130219
  19. TRICOR [Concomitant]
     Dosage: 145 MG, DAILY
     Route: 048
     Dates: end: 20140415

REACTIONS (3)
  - Hypertriglyceridaemia [Recovering/Resolving]
  - Disease recurrence [Unknown]
  - Metastatic renal cell carcinoma [Unknown]
